FAERS Safety Report 8492450-1 (Version None)
Quarter: 2012Q3

REPORT INFORMATION
  Report Type: 
  Country: None (occurrence: None)
  Receive Date: 20120706
  Receipt Date: 20120621
  Transmission Date: 20120928
  Serious: Yes (Other)
  Sender: FDA-Public Use
  Company Number: CZ-ROCHE-1080875

PATIENT
  Age: 51 Year
  Sex: Female

DRUGS (1)
  1. ISOTRETINOIN [Suspect]
     Indication: ALOPECIA SCARRING
     Route: 048

REACTIONS (3)
  - ARTHRALGIA [None]
  - SPINAL PAIN [None]
  - MUSCULAR WEAKNESS [None]
